FAERS Safety Report 6207737-2 (Version None)
Quarter: 2009Q2

REPORT INFORMATION
  Report Type: 
  Country: None (occurrence: None)
  Receive Date: 20090526
  Receipt Date: 20090515
  Transmission Date: 20091009
  Serious: Yes (Hospitalization, Other)
  Sender: FDA-Public Use
  Company Number: CIP09001182

PATIENT
  Age: 80 Year
  Sex: Female

DRUGS (2)
  1. FURADANTINE  (NITROFURANTOIN MACROCRYSTALS) [Suspect]
     Indication: CYSTITIS
     Dosage: 6 DOSAGE FORMS DAILY, ORAL
     Route: 048
     Dates: start: 20090503, end: 20090505
  2. TANAKAN [Concomitant]

REACTIONS (10)
  - CEREBELLAR ATAXIA [None]
  - CEREBELLAR SYNDROME [None]
  - CONDITION AGGRAVATED [None]
  - COORDINATION ABNORMAL [None]
  - FALL [None]
  - GAIT DISTURBANCE [None]
  - MENTAL DISORDER [None]
  - NERVOUS SYSTEM DISORDER [None]
  - PARAESTHESIA [None]
  - SENSORY LOSS [None]
